FAERS Safety Report 24345508 (Version 1)
Quarter: 2024Q3

REPORT INFORMATION
  Report Type: Spontaneous
  Country: US (occurrence: US)
  Receive Date: 20240920
  Receipt Date: 20240920
  Transmission Date: 20241017
  Serious: Yes (Death, Other)
  Sender: PURDUE
  Company Number: US-PURDUE PHARMA-USA-2024-0312076

PATIENT
  Age: 60 Year
  Sex: Male

DRUGS (3)
  1. DILAUDID [Suspect]
     Active Substance: HYDROMORPHONE HYDROCHLORIDE
     Indication: Procedural pain
     Dosage: ADMINISTERED 1 MILLIGRAM OF DILAUDID AT 12:30 PM
     Route: 048
  2. MORPHINE SULFATE [Suspect]
     Active Substance: MORPHINE SULFATE
     Indication: Procedural pain
     Dosage: ADMINISTERED 4 MILLIGRAMS OF MORPHINE AT 11:20 A.M.
     Route: 065
  3. FENTANYL [Suspect]
     Active Substance: FENTANYL\FENTANYL CITRATE
     Indication: Procedural pain
     Dosage: ADMINISTERED 50 MICROGRAMS OF FENTANYL AT 11:02 A.M. AND AT 11:06 A.M
     Route: 065

REACTIONS (5)
  - Brain injury [Fatal]
  - Cardiac arrest [Fatal]
  - Aspiration [Fatal]
  - Accidental overdose [Fatal]
  - Unresponsive to stimuli [Unknown]
